FAERS Safety Report 24801205 (Version 1)
Quarter: 2025Q1

REPORT INFORMATION
  Report Type: Spontaneous
  Country: US (occurrence: None)
  Receive Date: 20250102
  Receipt Date: 20250102
  Transmission Date: 20250409
  Serious: Yes (Other)
  Sender: FDA-CTU
  Company Number: None

PATIENT
  Age: 18 Year
  Sex: Male
  Weight: 71 kg

DRUGS (2)
  1. BARICITINIB [Suspect]
     Active Substance: BARICITINIB
     Indication: Alopecia areata
     Dosage: FREQUENCY : DAILY;?
     Route: 048
     Dates: start: 20230101
  2. OLUMIANT [Concomitant]
     Active Substance: BARICITINIB
     Dates: start: 20230101

REACTIONS (2)
  - Neck injury [None]
  - Papillary thyroid cancer [None]

NARRATIVE: CASE EVENT DATE: 20241210
